FAERS Safety Report 5168487-7 (Version None)
Quarter: 2006Q4

REPORT INFORMATION
  Report Type: 
  Country: None (occurrence: None)
  Receive Date: 20061208
  Receipt Date: 20061201
  Transmission Date: 20070319
  Serious: Yes (Hospitalization)
  Sender: FDA-Public Use
  Company Number: HR-NOVOPROD-259095

PATIENT
  Age: 17 Year
  Sex: Female

DRUGS (3)
  1. LEVEMIR [Suspect]
     Indication: DIABETES MELLITUS INSULIN-DEPENDENT
     Dosage: 16 IU, QD
     Route: 058
     Dates: start: 20060704, end: 20061122
  2. NOVORAPID [Concomitant]
     Indication: DIABETES MELLITUS INSULIN-DEPENDENT
     Dosage: 28 IU, QD (10+8+10)
     Route: 058
  3. NOLICIN [Concomitant]
     Indication: DIABETES MELLITUS INSULIN-DEPENDENT
     Dosage: 200 MG, QD/4 WEEKS
     Route: 058
     Dates: start: 20000101

REACTIONS (3)
  - DRUG EXPOSURE DURING PREGNANCY [None]
  - IMMINENT ABORTION [None]
  - PREGNANCY [None]
